FAERS Safety Report 9412026 (Version 1)
Quarter: 2013Q3

REPORT INFORMATION
  Report Type: Spontaneous
  Country: IT (occurrence: IT)
  Receive Date: 20130722
  Receipt Date: 20130722
  Transmission Date: 20140515
  Serious: Yes (Other)
  Sender: FDA-Public Use
  Company Number: IT-SANOFI-AVENTIS-2013SA070474

PATIENT
  Age: 77 Year
  Sex: Female

DRUGS (10)
  1. LASIX [Suspect]
     Indication: HYPERTENSION
     Route: 048
     Dates: start: 20130101, end: 20130605
  2. ISOPTIN [Suspect]
     Indication: HYPERTENSION
     Route: 048
     Dates: start: 20130101, end: 20130605
  3. EUTIROX [Concomitant]
     Route: 048
  4. TRIATEC [Concomitant]
     Route: 048
  5. PANTORC [Concomitant]
     Route: 048
  6. DUROGESIC [Concomitant]
     Route: 062
  7. ACTONEL [Concomitant]
     Route: 048
  8. DIFOSFONAL [Concomitant]
     Route: 030
  9. CALCIUM CARBONATE/COLECALCIFEROL [Concomitant]
     Route: 048
  10. TORVAST [Concomitant]
     Route: 048

REACTIONS (3)
  - Vertigo [Recovering/Resolving]
  - Fall [Recovering/Resolving]
  - Craniocerebral injury [Recovering/Resolving]
